FAERS Safety Report 6642126-8 (Version None)
Quarter: 2010Q1

REPORT INFORMATION
  Report Type: 
  Country: None (occurrence: None)
  Receive Date: 20100319
  Receipt Date: 20100311
  Transmission Date: 20100710
  Serious: Yes (Hospitalization)
  Sender: FDA-Public Use
  Company Number: FR-BRISTOL-MYERS SQUIBB COMPANY-13249552

PATIENT
  Sex: Male
  Weight: 61 kg

DRUGS (6)
  1. SUSTIVA [Suspect]
     Indication: HIV INFECTION
     Route: 048
     Dates: start: 20060105, end: 20060113
  2. TRUVADA [Suspect]
     Indication: HIV INFECTION
     Dates: start: 20060105
  3. RIFATER [Suspect]
     Indication: TUBERCULOSIS
     Dates: start: 20051130
  4. DEXAMBUTOL [Suspect]
     Indication: TUBERCULOSIS
     Dates: start: 20051205
  5. BACTRIM [Suspect]
     Indication: PNEUMOCYSTIS JIROVECI PNEUMONIA
     Dates: start: 20051126
  6. CORTANCYL [Suspect]
     Indication: TUBERCULOSIS
     Dates: start: 20051205, end: 20060113

REACTIONS (4)
  - CONVULSION [None]
  - PSYCHOTIC DISORDER [None]
  - PYREXIA [None]
  - TUBERCULOMA OF CENTRAL NERVOUS SYSTEM [None]
